FAERS Safety Report 9645389 (Version 1)
Quarter: 2013Q4

REPORT INFORMATION
  Report Type: Spontaneous
  Country: GB (occurrence: GB)
  Receive Date: 20131025
  Receipt Date: 20131025
  Transmission Date: 20140711
  Serious: Yes (Hospitalization, Other)
  Sender: FDA-Public Use
  Company Number: GB-SA-2013SA105502

PATIENT
  Age: 72 Year
  Sex: Male

DRUGS (8)
  1. LEFLUNOMIDE [Suspect]
     Indication: ARTHRITIS
     Route: 048
     Dates: start: 20121220, end: 20131007
  2. HUMIRA [Concomitant]
  3. SERETIDE [Concomitant]
  4. SALBUTAMOL [Concomitant]
  5. FLUOXETINE [Concomitant]
  6. IPRATROPIUM [Concomitant]
  7. CODEINE [Concomitant]
  8. CALCEOS [Concomitant]

REACTIONS (1)
  - Hepatotoxicity [Recovering/Resolving]
